FAERS Safety Report 5128925-2 (Version None)
Quarter: 2006Q4

REPORT INFORMATION
  Report Type: 
  Country: None (occurrence: None)
  Receive Date: 20061017
  Receipt Date: 20061011
  Transmission Date: 20070319
  Serious: Yes (Death, Hospitalization)
  Sender: FDA-Public Use
  Company Number: US-BRISTOL-MYERS SQUIBB COMPANY-13539762

PATIENT
  Age: 62 Year
  Sex: Male

DRUGS (8)
  1. CARBOPLATIN [Suspect]
     Indication: LUNG CANCER METASTATIC
     Route: 042
     Dates: start: 20060725, end: 20060927
  2. PACLITAXEL [Suspect]
     Indication: LUNG CANCER METASTATIC
     Route: 042
     Dates: start: 20060725, end: 20060927
  3. TIAZAC [Concomitant]
  4. LEXAPRO [Concomitant]
  5. PROTONIX [Concomitant]
  6. FENTANYL [Concomitant]
  7. DILAUDID [Concomitant]
     Indication: PAIN
  8. MUCOMYST [Concomitant]

REACTIONS (3)
  - CONFUSIONAL STATE [None]
  - DEATH [None]
  - FATIGUE [None]
